FAERS Safety Report 5070821-3 (Version None)
Quarter: 2006Q3

REPORT INFORMATION
  Report Type: 
  Country: None (occurrence: None)
  Receive Date: 20060804
  Receipt Date: 20060428
  Transmission Date: 20061208
  Serious: No
  Sender: FDA-Public Use
  Company Number: US-GLAXOSMITHKLINE-A0603824A

PATIENT
  Age: 64 Year
  Sex: Male

DRUGS (1)
  1. AMERICAN FARE NICOTINE GUM 4MG, ORIGINAL [Suspect]
     Dates: start: 20060423, end: 20060427

REACTIONS (2)
  - PHARYNGOLARYNGEAL PAIN [None]
  - THROAT IRRITATION [None]
